FAERS Safety Report 7301952-2 (Version None)
Quarter: 2011Q1

REPORT INFORMATION
  Report Type: 
  Country: None (occurrence: None)
  Receive Date: 20110218
  Receipt Date: 20110210
  Transmission Date: 20110831
  Serious: Yes (Hospitalization)
  Sender: FDA-Public Use
  Company Number: JP-ROCHE-760060

PATIENT
  Sex: Female
  Weight: 38 kg

DRUGS (5)
  1. ACTEMRA [Suspect]
     Indication: RHEUMATOID ARTHRITIS
     Route: 042
     Dates: start: 20100712, end: 20100712
  2. ACTEMRA [Suspect]
     Route: 042
     Dates: start: 20100809, end: 20100809
  3. ACTEMRA [Suspect]
     Route: 042
     Dates: start: 20100906, end: 20100906
  4. ACTEMRA [Suspect]
     Route: 042
     Dates: start: 20100930, end: 20100930
  5. PREDNISOLONE [Concomitant]
     Route: 048

REACTIONS (2)
  - VIITH NERVE PARALYSIS [None]
  - HERPES ZOSTER [None]
